FAERS Safety Report 8622247-0 (Version None)
Quarter: 2012Q3

REPORT INFORMATION
  Report Type: 
  Country: None (occurrence: None)
  Receive Date: 20120827
  Receipt Date: 20120816
  Transmission Date: 20120928
  Serious: Yes (Other)
  Sender: FDA-Public Use
  Company Number: US-MERCK-1207USA010851

PATIENT

DRUGS (1)
  1. PEG-INTRON [Suspect]
     Dosage: UNK UNK, QW

REACTIONS (1)
  - EXPOSURE VIA FATHER [None]
